FAERS Safety Report 7647824-5 (Version None)
Quarter: 2011Q3

REPORT INFORMATION
  Report Type: 
  Country: None (occurrence: None)
  Receive Date: 20110801
  Receipt Date: 20110728
  Transmission Date: 20111222
  Serious: Yes (Death, Life-Threatening)
  Sender: FDA-Public Use
  Company Number: IN-SANOFI-AVENTIS-200916256EU

PATIENT
  Age: 60 Year
  Sex: Male
  Weight: 44 kg

DRUGS (15)
  1. FLUOROURACIL [Concomitant]
     Route: 041
     Dates: start: 20090526, end: 20090526
  2. PANTOPRAZOLE SODIUM [Concomitant]
     Route: 042
     Dates: start: 20090617, end: 20090617
  3. ONDANSETRON [Concomitant]
     Indication: PROPHYLAXIS
     Route: 042
     Dates: start: 20090526, end: 20090526
  4. PANTOPRAZOLE SODIUM [Concomitant]
     Indication: PROPHYLAXIS
     Route: 042
     Dates: start: 20090526, end: 20090526
  5. FLUOROURACIL [Concomitant]
     Route: 041
     Dates: start: 20090708, end: 20090708
  6. DEXAMETHASONE [Concomitant]
     Indication: PROPHYLAXIS
     Route: 042
     Dates: start: 20090526, end: 20090526
  7. NEUPOGEN [Concomitant]
     Indication: PROPHYLAXIS
     Route: 058
     Dates: start: 20090526, end: 20090526
  8. DEXAMETHASONE [Concomitant]
     Route: 042
     Dates: start: 20090617, end: 20090617
  9. PANTOPRAZOLE SODIUM [Concomitant]
     Route: 042
     Dates: start: 20090708, end: 20090708
  10. FLUOROURACIL [Concomitant]
     Route: 041
     Dates: start: 20090617, end: 20090617
  11. DEXAMETHASONE [Concomitant]
     Route: 042
     Dates: start: 20090708, end: 20090708
  12. ONDANSETRON [Concomitant]
     Route: 042
     Dates: start: 20090617, end: 20090617
  13. NEUPOGEN [Concomitant]
     Route: 042
     Dates: start: 20090617, end: 20090617
  14. ENOXAPARIN SODIUM [Suspect]
     Route: 058
     Dates: start: 20090526, end: 20090722
  15. ONDANSETRON [Concomitant]
     Route: 042
     Dates: start: 20090708, end: 20090708

REACTIONS (2)
  - GASTROINTESTINAL HAEMORRHAGE [None]
  - MULTI-ORGAN FAILURE [None]
